APPROVED DRUG PRODUCT: HYDROCORTISONE ACETATE
Active Ingredient: HYDROCORTISONE ACETATE
Strength: 1%
Dosage Form/Route: CREAM;TOPICAL
Application: A089914 | Product #001
Applicant: PARKE DAVIS DIV WARNER LAMBERT CO
Approved: Jan 3, 1989 | RLD: No | RS: No | Type: DISCN